FAERS Safety Report 8132514-5 (Version None)
Quarter: 2012Q1

REPORT INFORMATION
  Report Type: 
  Country: None (occurrence: None)
  Receive Date: 20120213
  Receipt Date: 20120206
  Transmission Date: 20120608
  Serious: Yes (Hospitalization)
  Sender: FDA-Public Use
  Company Number: US-BAYER-2011-024330

PATIENT
  Age: 35 Year
  Sex: Female
  Weight: 52 kg

DRUGS (20)
  1. ZOFRAN [Concomitant]
     Dosage: 8 MG, UNK
     Dates: start: 20051115, end: 20080908
  2. SINGULAIR [Concomitant]
     Dosage: 10 MG, UNK
     Dates: start: 20060411, end: 20080929
  3. ALPRAZOLAM [Concomitant]
     Dosage: 0.25 MG, UNK
     Dates: start: 20070717, end: 20080413
  4. LYRICA [Concomitant]
     Dosage: 50 MG, UNK
     Dates: start: 20070806, end: 20080908
  5. ORPHENADRINE CITRATE [Concomitant]
     Dosage: 100 MG, UNK
     Dates: start: 20060807, end: 20070618
  6. ALBUTEROL [Concomitant]
     Dosage: UNK
     Dates: start: 20050707, end: 20070928
  7. OXYCODONE HCL AND ACETAMINOPHEN [Concomitant]
     Dosage: UNK
     Dates: start: 20060304, end: 20080916
  8. ETODOLAC [Concomitant]
     Dosage: UNK
     Dates: start: 20070601, end: 20070708
  9. EPIPEN [Concomitant]
     Dosage: 0.3 MG, UNK
     Dates: start: 20060411, end: 20070913
  10. YAZ [Suspect]
     Indication: PREMENSTRUAL SYNDROME
     Dosage: UNK
     Route: 048
     Dates: start: 20070501, end: 20071201
  11. ZYRTEC [Concomitant]
     Dosage: 10 MG, UNK
     Dates: start: 20060411, end: 20080104
  12. METOCLOPRAMIDE [Concomitant]
     Dosage: 10 MG, UNK
     Dates: start: 20070823, end: 20080916
  13. ZEGERID [Concomitant]
     Dosage: 40 MG, UNK
     Dates: start: 20070223, end: 20080908
  14. BELLADONNA ALKALOIDS [Concomitant]
     Dosage: UNK
     Dates: start: 20070619
  15. AMBIEN [Concomitant]
     Dosage: UNK
     Dates: start: 20051219, end: 20090108
  16. GLYCOLAX [Concomitant]
     Dosage: UNK
     Dates: start: 20070414, end: 20080822
  17. NITROFURANTOIN [Concomitant]
     Dosage: UNK
     Dates: start: 20070717
  18. ADVAIR DISKUS 100/50 [Concomitant]
     Dosage: UNK
     Dates: start: 20060315, end: 20080617
  19. FAMVIR [Concomitant]
     Dosage: 500 MG, UNK
     Dates: start: 20070623
  20. AVELOX [Concomitant]
     Dosage: 400 MG, UNK
     Dates: end: 20070914

REACTIONS (9)
  - ABDOMINAL PAIN UPPER [None]
  - CHOLELITHIASIS [None]
  - CHOLECYSTITIS [None]
  - BILIARY FISTULA [None]
  - GENERAL PHYSICAL HEALTH DETERIORATION [None]
  - PAIN [None]
  - EMOTIONAL DISTRESS [None]
  - ANXIETY [None]
  - PANCREATITIS ACUTE [None]
